FAERS Safety Report 13208981 (Version 1)
Quarter: 2017Q1

REPORT INFORMATION
  Report Type: Spontaneous
  Country: US (occurrence: US)
  Receive Date: 20170209
  Receipt Date: 20170209
  Transmission Date: 20170428
  Serious: No
  Sender: FDA-Public Use
  Company Number: US-ROCHE-1746361

PATIENT
  Sex: Female
  Weight: 60.84 kg

DRUGS (4)
  1. XOLAIR [Suspect]
     Active Substance: OMALIZUMAB
     Indication: ASTHMA
     Route: 058
     Dates: start: 201503
  2. DULERA [Concomitant]
     Active Substance: FORMOTEROL FUMARATE DIHYDRATE\MOMETASONE FUROATE
     Indication: ASTHMA
     Dosage: 2PUFFS BID, STRENGTH:200
     Route: 055
     Dates: start: 201407, end: 20160113
  3. ALBUTEROL. [Concomitant]
     Active Substance: ALBUTEROL
     Indication: ASTHMA
     Dosage: 2 PUFFS PRN?STRENGTH:HFA+SVN
     Route: 055
     Dates: start: 201406
  4. ASMANEX [Concomitant]
     Active Substance: MOMETASONE FUROATE
     Indication: ASTHMA
     Dosage: 2PUFFS BID, STRENGTH: 100
     Route: 055
     Dates: start: 20160101

REACTIONS (1)
  - Pregnancy [Unknown]
